FAERS Safety Report 5921220-0 (Version None)
Quarter: 2008Q4

REPORT INFORMATION
  Report Type: 
  Country: None (occurrence: None)
  Receive Date: 20081016
  Receipt Date: 20081014
  Transmission Date: 20090506
  Serious: Yes (Death)
  Sender: FDA-Public Use
  Company Number: CA-B.I. PHARMACEUTICALS,INC./RIDGEFIELD-2008-CN-00510CN

PATIENT
  Sex: Female

DRUGS (2)
  1. CATAPRES [Suspect]
     Indication: PAIN MANAGEMENT
     Dates: start: 20080910
  2. MORPHINE [Concomitant]
     Dosage: 300MG
     Route: 058

REACTIONS (1)
  - VENTRICULAR FIBRILLATION [None]
